FAERS Safety Report 16754142 (Version 2)
Quarter: 2019Q3

REPORT INFORMATION
  Report Type: Other
  Country: CA (occurrence: CA)
  Receive Date: 20190829
  Receipt Date: 20190930
  Transmission Date: 20191005
  Serious: Yes (Hospitalization, Other)
  Sender: FDA-Public Use
  Company Number: CA-APOTEX-2019AP020942

PATIENT
  Age: 56 Year
  Sex: Female

DRUGS (3)
  1. TOPIRAMATE. [Suspect]
     Active Substance: TOPIRAMATE
     Indication: MIGRAINE
     Dosage: UNK
     Route: 065
  2. MEMANTINE. [Suspect]
     Active Substance: MEMANTINE
     Indication: MIGRAINE
     Dosage: UNK
     Route: 065
  3. AMITRIPTYLINE [Concomitant]
     Active Substance: AMITRIPTYLINE
     Indication: MIGRAINE
     Dosage: UNK
     Route: 065

REACTIONS (5)
  - Abdominal discomfort [Unknown]
  - Drug ineffective for unapproved indication [Unknown]
  - Drug ineffective [Unknown]
  - Hypersensitivity [Unknown]
  - Loss of consciousness [Unknown]
